FAERS Safety Report 8988165 (Version 3)
Quarter: 2013Q1

REPORT INFORMATION
  Report Type: Report from Study
  Country: IT (occurrence: IT)
  Receive Date: 20121227
  Receipt Date: 20130116
  Transmission Date: 20140127
  Serious: Yes (Hospitalization, Disabling)
  Sender: FDA-Public Use
  Company Number: IT-ROCHE-1173148

PATIENT
  Age: 68 Year
  Sex: Female
  Weight: 58 kg

DRUGS (4)
  1. CAPECITABINE [Suspect]
     Indication: BREAST CANCER METASTATIC
     Dosage: RECENT DOSE PRIOR TO EVENT WAS TAKEN ON 03/DEC/2012
     Route: 048
     Dates: start: 20121120
  2. BEVACIZUMAB [Suspect]
     Indication: BREAST CANCER METASTATIC
     Route: 042
     Dates: start: 20121120
  3. LANSOPRAZOLE [Concomitant]
     Route: 065
     Dates: start: 20121006
  4. DEXAMETHASONE [Concomitant]
     Dosage: APRROXIMATELY 4 MG
     Route: 065
     Dates: start: 20121009

REACTIONS (2)
  - General physical health deterioration [Not Recovered/Not Resolved]
  - Psychomotor retardation [Not Recovered/Not Resolved]
